FAERS Safety Report 9110027 (Version 1)
Quarter: 2013Q1

REPORT INFORMATION
  Report Type: Spontaneous
  Country: TR (occurrence: TR)
  Receive Date: 20130222
  Receipt Date: 20130222
  Transmission Date: 20140127
  Serious: Yes (Other)
  Sender: FDA-Public Use
  Company Number: TR-CELGENEUS-161-21880-13021678

PATIENT
  Age: 37 Year
  Sex: Male

DRUGS (3)
  1. REVLIMID [Suspect]
     Indication: PLASMA CELL LEUKAEMIA
     Route: 048
     Dates: start: 201212
  2. ADRIAMYCIN [Concomitant]
     Indication: PLASMA CELL LEUKAEMIA
     Route: 065
     Dates: start: 201212
  3. DEXAMETHASONE [Concomitant]
     Indication: PLASMA CELL LEUKAEMIA
     Route: 065
     Dates: start: 201212

REACTIONS (2)
  - Haemorrhage [Unknown]
  - White blood cell count decreased [Unknown]
